FAERS Safety Report 22185785 (Version 1)
Quarter: 2023Q2

REPORT INFORMATION
  Report Type: Spontaneous
  Country: FR (occurrence: None)
  Receive Date: 20230407
  Receipt Date: 20230407
  Transmission Date: 20230721
  Serious: Yes (Hospitalization)
  Sender: FDA-Public Use
  Company Number: 2023A075706

PATIENT
  Age: 53 Year
  Sex: Female

DRUGS (3)
  1. QUETIAPINE [Suspect]
     Active Substance: QUETIAPINE
     Indication: Bipolar disorder
     Dosage: 150MG 1 DAILY
     Route: 048
     Dates: start: 20221123, end: 20221212
  2. ACETAMINOPHEN [Suspect]
     Active Substance: ACETAMINOPHEN
     Indication: Pain
     Dosage: NOT KNOWN
     Route: 048
     Dates: start: 20221208, end: 20221212
  3. CODEINE [Suspect]
     Active Substance: CODEINE
     Indication: Pain
     Dosage: NOT KNOWN
     Route: 048
     Dates: start: 20221208, end: 20221212

REACTIONS (2)
  - Cholestasis [Recovering/Resolving]
  - Hepatic cytolysis [Recovered/Resolved]

NARRATIVE: CASE EVENT DATE: 20221209
